FAERS Safety Report 4287976-0 (Version None)
Quarter: 2004Q1

REPORT INFORMATION
  Report Type: 
  Country: None (occurrence: None)
  Receive Date: 20040205
  Receipt Date: 20040115
  Transmission Date: 20041129
  Serious: Yes (Hospitalization)
  Sender: FDA-Public Use
  Company Number: A02200400197

PATIENT
  Age: 50 Year

DRUGS (1)
  1. PLAQUENIL [Suspect]
     Indication: SYSTEMIC LUPUS ERYTHEMATOSUS
     Dosage: 400 MG QD; ORAL
     Route: 048
     Dates: start: 20010315, end: 20031015

REACTIONS (1)
  - MYOCARDITIS [None]
